FAERS Safety Report 9341852 (Version 2)
Quarter: 2013Q3

REPORT INFORMATION
  Report Type: Spontaneous
  Country: US (occurrence: US)
  Receive Date: 20130611
  Receipt Date: 20130710
  Transmission Date: 20140515
  Serious: Yes (Hospitalization)
  Sender: FDA-Public Use
  Company Number: US-BIOGENIDEC-2013BI050304

PATIENT
  Age: 46 Year
  Sex: Male

DRUGS (1)
  1. AVONEX [Suspect]
     Indication: MULTIPLE SCLEROSIS
     Route: 030
     Dates: start: 20060323, end: 20130412

REACTIONS (3)
  - Intervertebral disc protrusion [Recovered/Resolved]
  - Sinus congestion [Not Recovered/Not Resolved]
  - Fatigue [Recovered/Resolved]
